FAERS Safety Report 8593933-6 (Version None)
Quarter: 2012Q3

REPORT INFORMATION
  Report Type: 
  Country: None (occurrence: None)
  Receive Date: 20120814
  Receipt Date: 20120808
  Transmission Date: 20120928
  Serious: Yes (Other)
  Sender: FDA-Public Use
  Company Number: AU-UCBSA-063400

PATIENT
  Sex: Female

DRUGS (1)
  1. NEUPRO [Suspect]
     Indication: PARKINSON'S DISEASE
     Route: 062

REACTIONS (2)
  - LUNG NEOPLASM [None]
  - DRUG HYPERSENSITIVITY [None]
